FAERS Safety Report 9600243 (Version 1)
Quarter: 2013Q4

REPORT INFORMATION
  Report Type: Spontaneous
  Country: US (occurrence: US)
  Receive Date: 20131004
  Receipt Date: 20131004
  Transmission Date: 20140711
  Serious: No
  Sender: FDA-Public Use
  Company Number: US-AMGEN-USASP2013033460

PATIENT
  Age: 54 Year
  Sex: Male
  Weight: 124.72 kg

DRUGS (7)
  1. ENBREL [Suspect]
     Indication: PRODUCT USED FOR UNKNOWN INDICATION
     Dosage: 50 MG, QWK
     Route: 058
  2. VITAMIN D                          /00107901/ [Concomitant]
     Dosage: 2000 UNIT, UNK
  3. BENAZEPRIL [Concomitant]
     Dosage: 40 MG, UNK
  4. METFORMIN [Concomitant]
     Dosage: 500 MG, UNK
  5. ALLOPURINOL [Concomitant]
     Dosage: 100 MG, UNK
  6. NEURONTIN [Concomitant]
     Dosage: 300 MG, UNK
  7. ISONIAZID [Concomitant]
     Dosage: 100 MG, UNK

REACTIONS (4)
  - Erythema [Unknown]
  - Animal bite [Unknown]
  - Local swelling [Unknown]
  - Pain in extremity [Unknown]
